FAERS Safety Report 20844388 (Version 1)
Quarter: 2022Q2

REPORT INFORMATION
  Report Type: Spontaneous
  Country: TW (occurrence: TW)
  Receive Date: 20220518
  Receipt Date: 20220518
  Transmission Date: 20220721
  Serious: Yes (Other)
  Sender: FDA-Public Use
  Company Number: TW-JNJFOC-20220531544

PATIENT
  Age: 60 Year
  Sex: Male

DRUGS (2)
  1. MINOXIDIL [Suspect]
     Active Substance: MINOXIDIL
     Indication: Alopecia
     Dosage: APPLIED LIBERALLY, ONE BOTTLE FOR 2-3 MONTHS ONCE DAILY
     Route: 061
     Dates: start: 2017
  2. PREGAIN [Concomitant]
     Indication: Personal hygiene
     Route: 061

REACTIONS (3)
  - Conjunctival haemorrhage [Not Recovered/Not Resolved]
  - Inappropriate schedule of product administration [Not Recovered/Not Resolved]
  - Incorrect dose administered [Not Recovered/Not Resolved]

NARRATIVE: CASE EVENT DATE: 20170101
